FAERS Safety Report 6370059-3 (Version None)
Quarter: 2009Q3

REPORT INFORMATION
  Report Type: 
  Country: None (occurrence: None)
  Receive Date: 20090923
  Receipt Date: 20070920
  Transmission Date: 20100115
  Serious: No
  Sender: FDA-Public Use
  Company Number: US-ASTRAZENECA-2006UW20932

PATIENT
  Age: 17 Year
  Sex: Male
  Weight: 123.5 kg

DRUGS (21)
  1. SEROQUEL [Suspect]
     Indication: DEPRESSION
     Route: 048
     Dates: start: 20050927, end: 20050101
  2. SEROQUEL [Suspect]
     Indication: BIPOLAR DISORDER
     Route: 048
     Dates: start: 20050927, end: 20050101
  3. SEROQUEL [Suspect]
     Indication: ANXIETY
     Route: 048
     Dates: start: 20050927, end: 20050101
  4. SEROQUEL [Suspect]
     Indication: INSOMNIA
     Route: 048
     Dates: start: 20050927, end: 20050101
  5. SEROQUEL [Suspect]
     Route: 048
     Dates: start: 20050921
  6. SEROQUEL [Suspect]
     Route: 048
     Dates: start: 20050921
  7. SEROQUEL [Suspect]
     Route: 048
     Dates: start: 20050921
  8. SEROQUEL [Suspect]
     Route: 048
     Dates: start: 20050921
  9. LANTUS [Concomitant]
     Dosage: 100 U/ML
     Route: 065
  10. WELLBUTRIN [Concomitant]
     Dosage: 150 MG TO 300 MG
     Route: 048
  11. PROZAC [Concomitant]
     Dosage: 20 MG, 40 MG
     Route: 065
  12. CLONIDINE HCL [Concomitant]
     Dosage: 0.1 MG TO 0.3 MG PER DAY
     Route: 048
  13. METFORMIN HCL [Concomitant]
     Dosage: 500 MG TO 1000 MG
     Route: 048
  14. NOVOLOG [Concomitant]
     Indication: TYPE 2 DIABETES MELLITUS
     Dosage: 100 U/1 ML
     Route: 065
  15. CONCERTA [Concomitant]
     Route: 065
  16. PAXIL [Concomitant]
     Route: 065
  17. LISINOPRIL [Concomitant]
     Route: 048
  18. ALBUTEROL [Concomitant]
     Dosage: 90 MCG/1ACT
     Route: 065
  19. BENZONATATE [Concomitant]
     Route: 048
  20. GLUCAGON [Concomitant]
     Route: 065
  21. TRAMADOL HCL [Concomitant]
     Route: 048

REACTIONS (7)
  - BACK PAIN [None]
  - COUGH [None]
  - DIABETES MELLITUS [None]
  - DYSHIDROSIS [None]
  - HYPERTENSION [None]
  - HYPOGLYCAEMIA [None]
  - OROPHARYNGEAL PAIN [None]
